FAERS Safety Report 17547630 (Version 2)
Quarter: 2020Q2

REPORT INFORMATION
  Report Type: Report from Study
  Country: None (occurrence: BR)
  Receive Date: 20200317
  Receipt Date: 20200614
  Transmission Date: 20200713
  Serious: Yes (Hospitalization, Other)
  Sender: FDA-Public Use
  Company Number: BR-ABBVIE-20K-020-3320983-00

PATIENT
  Sex: Female
  Weight: 86 kg

DRUGS (8)
  1. HUMIRA [Suspect]
     Active Substance: ADALIMUMAB
     Indication: RHEUMATOID ARTHRITIS
     Route: 058
     Dates: start: 20141001, end: 20200217
  2. DEMEDROX [Suspect]
     Active Substance: MEDROXYPROGESTERONE ACETATE
     Indication: MENSTRUAL DISORDER
  3. LUFTAL [Concomitant]
     Active Substance: DIMETHICONE
     Indication: PROPHYLAXIS
     Route: 048
  4. HUMIRA [Suspect]
     Active Substance: ADALIMUMAB
     Route: 058
     Dates: start: 20200317
  5. REUQUINOL [Concomitant]
     Active Substance: HYDROXYCHLOROQUINE SULFATE
     Indication: RHEUMATOID ARTHRITIS
     Route: 065
  6. DEMEDROX [Suspect]
     Active Substance: MEDROXYPROGESTERONE ACETATE
     Indication: ENDOMETRIOSIS
     Route: 030
     Dates: start: 201906, end: 201909
  7. LUFTAL [Concomitant]
     Active Substance: DIMETHICONE
     Indication: FLATULENCE
  8. DEMEDROX [Suspect]
     Active Substance: MEDROXYPROGESTERONE ACETATE
     Indication: CYST

REACTIONS (4)
  - Hysterectomy [Recovered/Resolved]
  - Uterine enlargement [Recovered/Resolved]
  - Endometriosis [Recovered/Resolved]
  - Therapeutic product effect incomplete [Unknown]

NARRATIVE: CASE EVENT DATE: 2017
